FAERS Safety Report 20906478 (Version 1)
Quarter: 2022Q2

REPORT INFORMATION
  Report Type: Spontaneous
  Country: US (occurrence: None)
  Receive Date: 20220602
  Receipt Date: 20220602
  Transmission Date: 20220721
  Serious: Yes (Disabling)
  Sender: FDA-Public Use
  Company Number: None

PATIENT
  Age: 67 Year
  Sex: Male
  Weight: 92.99 kg

DRUGS (1)
  1. TADALAFIL [Suspect]
     Active Substance: TADALAFIL

REACTIONS (3)
  - Chest pain [None]
  - Eye injury [None]
  - Vision blurred [None]

NARRATIVE: CASE EVENT DATE: 20220511
